FAERS Safety Report 6987768-5 (Version None)
Quarter: 2010Q3

REPORT INFORMATION
  Report Type: 
  Country: None (occurrence: None)
  Receive Date: 20100914
  Receipt Date: 20100830
  Transmission Date: 20110219
  Serious: Yes (Hospitalization, Other)
  Sender: FDA-Public Use
  Company Number: IDR-00415

PATIENT
  Age: 48 Year

DRUGS (1)
  1. INDERAL [Suspect]
     Indication: MIGRAINE
     Dosage: 40 MG DAILY ORAL FORMULATION: TABLET
     Route: 048

REACTIONS (11)
  - DEEP VEIN THROMBOSIS [None]
  - DIARRHOEA [None]
  - FATIGUE [None]
  - GAIT DISTURBANCE [None]
  - JOINT SWELLING [None]
  - MUSCLE SPASMS [None]
  - NIGHTMARE [None]
  - PAIN IN EXTREMITY [None]
  - PERIPHERAL COLDNESS [None]
  - SLEEP DISORDER [None]
  - VISUAL IMPAIRMENT [None]
